FAERS Safety Report 18168302 (Version 1)
Quarter: 2020Q3

REPORT INFORMATION
  Report Type: Spontaneous
  Country: DE (occurrence: DE)
  Receive Date: 20200819
  Receipt Date: 20200819
  Transmission Date: 20201103
  Serious: Yes (Hospitalization)
  Sender: FDA-Public Use
  Company Number: DE-ASTRAZENECA-2020SF00668

PATIENT
  Age: 54 Year
  Sex: Male
  Weight: 100 kg

DRUGS (9)
  1. VITAMIN B?KOMPLEX FORTE HEVERT [Concomitant]
     Dosage: 2?0?0?0,
     Route: 048
  2. SUCONTRAL [Suspect]
     Active Substance: DIETARY SUPPLEMENT\HERBALS
     Dosage: 1?0?1?0,
     Route: 048
  3. PRO VITA D3 OL FORTE [Concomitant]
     Dosage: 5.67|1.42|220|25|40 MG/UG, 2?0?0?0
     Route: 048
  4. ONGLYZA [Suspect]
     Active Substance: SAXAGLIPTIN HYDROCHLORIDE
     Dosage: 5 MG, 1?0?0?0, TABLET
     Route: 048
  5. LEVOTHYROXIN?NATRIUM [Concomitant]
     Active Substance: LEVOTHYROXINE SODIUM
     Dosage: 75 MCG, 1?0?0?0,
     Route: 048
  6. PRO OMEGA [Concomitant]
     Dosage: 460|380 MG, 1?0?1?0,
     Route: 048
  7. METFORMIN [Suspect]
     Active Substance: METFORMIN HYDROCHLORIDE
     Dosage: 1000 MG, 1?0?1?0,
     Route: 048
  8. GLIMEPIRID ABZ [Suspect]
     Active Substance: GLIMEPIRIDE
     Dosage: 3 MG, 0.5?0?0.5?0,
     Route: 048
  9. EISEN [Concomitant]
     Dosage: 25 MG, 1?0?0?0,
     Route: 048

REACTIONS (5)
  - Dehydration [Unknown]
  - Tachycardia [Unknown]
  - Decreased appetite [Unknown]
  - Dyspnoea [Unknown]
  - General physical health deterioration [Unknown]
